FAERS Safety Report 18239009 (Version 4)
Quarter: 2020Q3

REPORT INFORMATION
  Report Type: Spontaneous
  Country: PL (occurrence: PL)
  Receive Date: 20200907
  Receipt Date: 20200918
  Transmission Date: 20201103
  Serious: Yes (Hospitalization, Disabling)
  Sender: FDA-Public Use
  Company Number: NVSC2020PL241233

PATIENT
  Age: 20 Year
  Sex: Male

DRUGS (20)
  1. PENTOXIFYLLINE. [Suspect]
     Active Substance: PENTOXIFYLLINE
     Indication: RETINITIS VIRAL
     Dosage: UNK
     Route: 065
  2. CIPROFLOXACIN. [Suspect]
     Active Substance: CIPROFLOXACIN
     Indication: RETINITIS VIRAL
     Dosage: UNK
     Route: 065
  3. PREDNISONE. [Concomitant]
     Active Substance: PREDNISONE
     Indication: OPHTHALMIC HERPES SIMPLEX
     Dosage: UNK IN DECREASING DOSE
     Route: 065
  4. LEVOFLOXACIN. [Suspect]
     Active Substance: LEVOFLOXACIN
     Indication: RETINITIS VIRAL
     Dosage: UNK
     Route: 065
  5. TROPICAMIDE. [Suspect]
     Active Substance: TROPICAMIDE
     Indication: RETINITIS VIRAL
     Dosage: UNK
     Route: 065
  6. ACICLOVIR [Suspect]
     Active Substance: ACYCLOVIR
     Indication: RETINITIS VIRAL
     Dosage: 1000 MG, TID
     Route: 065
  7. POTASSIUM [Suspect]
     Active Substance: POTASSIUM
     Indication: RETINITIS VIRAL
     Dosage: UNK
     Route: 065
  8. DEXAMETHASONE. [Suspect]
     Active Substance: DEXAMETHASONE
     Indication: RETINITIS VIRAL
     Dosage: UNK
     Route: 065
  9. GANCICLOVIR. [Suspect]
     Active Substance: GANCICLOVIR
     Indication: OPHTHALMIC HERPES SIMPLEX
     Dosage: 600 MG, QD
     Route: 042
  10. CEFUROXIME. [Suspect]
     Active Substance: CEFUROXIME
     Indication: RETINITIS VIRAL
     Dosage: UNK
     Route: 065
  11. METHYLPREDNISOLONE. [Suspect]
     Active Substance: METHYLPREDNISOLONE
     Indication: RETINITIS VIRAL
     Dosage: 2000 MG, QD
     Route: 065
  12. KETOPROFEN. [Suspect]
     Active Substance: KETOPROFEN
     Indication: RETINITIS VIRAL
     Dosage: UNK
     Route: 065
  13. ATROPINE SULFATE. [Suspect]
     Active Substance: ATROPINE SULFATE
     Indication: RETINITIS VIRAL
     Dosage: UNK
     Route: 065
  14. METRONIDAZOLE. [Suspect]
     Active Substance: METRONIDAZOLE
     Indication: RETINITIS VIRAL
     Dosage: UNK
     Route: 065
  15. FLUCONAZOLE. [Suspect]
     Active Substance: FLUCONAZOLE
     Indication: RETINITIS VIRAL
     Dosage: UNK
     Route: 065
  16. ACETAZOLAMIDE. [Suspect]
     Active Substance: ACETAZOLAMIDE
     Indication: RETINITIS VIRAL
     Dosage: UNK
     Route: 065
  17. METHYLPREDNISOLONE. [Suspect]
     Active Substance: METHYLPREDNISOLONE
     Dosage: UNK
     Route: 065
  18. GENTAMICIN. [Suspect]
     Active Substance: GENTAMICIN
     Indication: RETINITIS VIRAL
     Dosage: UNK
     Route: 065
  19. PHENYLEPHRINE [Concomitant]
     Active Substance: PHENYLEPHRINE HYDROCHLORIDE
     Indication: OPHTHALMIC HERPES SIMPLEX
     Dosage: UNK
     Route: 065
  20. ACICLOVIR [Suspect]
     Active Substance: ACYCLOVIR
     Indication: OPHTHALMIC HERPES SIMPLEX
     Route: 048

REACTIONS (8)
  - Necrotising retinitis [Not Recovered/Not Resolved]
  - Visual acuity reduced [Not Recovered/Not Resolved]
  - Therapy non-responder [Unknown]
  - Cataract subcapsular [Not Recovered/Not Resolved]
  - Tractional retinal detachment [Not Recovered/Not Resolved]
  - Condition aggravated [Unknown]
  - Drug ineffective [Unknown]
  - Product use in unapproved indication [Unknown]
